FAERS Safety Report 7453606-X (Version None)
Quarter: 2011Q2

REPORT INFORMATION
  Report Type: 
  Country: None (occurrence: None)
  Receive Date: 20110502
  Receipt Date: 20110404
  Transmission Date: 20111010
  Serious: Yes (Other)
  Sender: FDA-Public Use
  Company Number: US-BAYER-2011-011031

PATIENT
  Sex: Female
  Weight: 58.957 kg

DRUGS (9)
  1. YASMIN [Suspect]
     Indication: ACNE
     Dosage: UNK
     Dates: start: 20030101, end: 20090101
  2. DROSPIRENONE AND ETHINYL ESTRADIOL [Suspect]
     Indication: PREMENSTRUAL SYNDROME
  3. HYOMAX-SR [Concomitant]
     Indication: ABDOMINAL DISTENSION
     Dosage: UNK
     Dates: start: 20090923
  4. VALTREX [Concomitant]
     Route: 048
  5. YAZ [Suspect]
     Indication: PREMENSTRUAL SYNDROME
     Dosage: UNK
     Dates: start: 20030101, end: 20090101
  6. YASMIN [Suspect]
     Indication: PREMENSTRUAL SYNDROME
  7. DROSPIRENONE AND ETHINYL ESTRADIOL [Suspect]
     Indication: ACNE
     Dosage: UNK
     Dates: start: 20030101, end: 20090101
  8. YAZ [Suspect]
     Indication: ACNE
  9. DUAC CS [Concomitant]
     Route: 061

REACTIONS (6)
  - GALLBLADDER DISORDER [None]
  - DEFORMITY [None]
  - DISABILITY [None]
  - ABDOMINAL DISTENSION [None]
  - PAIN [None]
  - FOOD INTOLERANCE [None]
